FAERS Safety Report 7938272-9 (Version None)
Quarter: 2011Q4

REPORT INFORMATION
  Report Type: 
  Country: None (occurrence: None)
  Receive Date: 20111123
  Receipt Date: 20111111
  Transmission Date: 20120403
  Serious: Yes (Hospitalization)
  Sender: FDA-Public Use
  Company Number: RU-CELGENEUS-251-50794-11111684

PATIENT
  Sex: Female
  Weight: 75 kg

DRUGS (2)
  1. VIDAZA [Suspect]
     Indication: MYELODYSPLASTIC SYNDROME
     Dosage: 70 MILLIGRAM
     Route: 065
     Dates: start: 20111006, end: 20111012
  2. LATRAN [Concomitant]
     Dosage: 8 MILLIGRAM
     Route: 048
     Dates: start: 20111006, end: 20111012

REACTIONS (2)
  - ANAL FISTULA [None]
  - TUMOUR LYSIS SYNDROME [None]
